FAERS Safety Report 8879497 (Version 1)
Quarter: 2012Q4

REPORT INFORMATION
  Report Type: 
  Country: FR (occurrence: FR)
  Receive Date: 20121031
  Receipt Date: 20121031
  Transmission Date: 20130627
  Serious: Yes (Other)
  Sender: FDA-Public Use
  Company Number: FR-ASTRAZENECA-2012SE79939

PATIENT
  Age: 46 Year
  Sex: Female

DRUGS (1)
  1. SYMBICORT TBH [Suspect]
     Indication: RESPIRATORY TRACT INFECTION
     Dosage: 160/4.5 UG PER DOSE, ONE INHALATION TWICE PER DAY
     Route: 055
     Dates: start: 20120921, end: 20120921

REACTIONS (1)
  - Face oedema [Recovered/Resolved]
